FAERS Safety Report 24546252 (Version 2)
Quarter: 2024Q4

REPORT INFORMATION
  Report Type: Spontaneous
  Country: FR (occurrence: FR)
  Receive Date: 20241024
  Receipt Date: 20241109
  Transmission Date: 20250115
  Serious: Yes (Hospitalization)
  Sender: TEVA
  Company Number: None

PATIENT
  Age: 66 Year
  Sex: Male
  Weight: 74 kg

DRUGS (7)
  1. ALLOPURINOL [Suspect]
     Active Substance: ALLOPURINOL
     Indication: Hyperuricaemia
     Route: 048
     Dates: start: 202401, end: 20240715
  2. RAMIPRIL [Suspect]
     Active Substance: RAMIPRIL
     Indication: Hypertension
     Route: 048
     Dates: start: 202401, end: 20240715
  3. HERBALS\SAW PALMETTO [Concomitant]
     Active Substance: HERBALS\SAW PALMETTO
     Indication: Product used for unknown indication
     Route: 065
  4. HEXETIDINE [Concomitant]
     Active Substance: HEXETIDINE
     Indication: Product used for unknown indication
     Route: 065
  5. ESOMEPRAZOLE [Suspect]
     Active Substance: ESOMEPRAZOLE
     Indication: Product used for unknown indication
     Route: 048
     Dates: start: 202404, end: 20240715
  6. ASPIRIN [Concomitant]
     Active Substance: ASPIRIN
     Indication: Product used for unknown indication
     Route: 065
  7. LIPTRUZET [Concomitant]
     Active Substance: ATORVASTATIN CALCIUM\EZETIMIBE
     Indication: Product used for unknown indication
     Route: 065

REACTIONS (2)
  - Lichen planus [Recovering/Resolving]
  - Pancytopenia [Recovering/Resolving]

NARRATIVE: CASE EVENT DATE: 20240401
